FAERS Safety Report 7904815-4 (Version None)
Quarter: 2011Q4

REPORT INFORMATION
  Report Type: 
  Country: None (occurrence: None)
  Receive Date: 20111109
  Receipt Date: 20111025
  Transmission Date: 20120403
  Serious: Yes (Other)
  Sender: FDA-Public Use
  Company Number: PHHY2011US29913

PATIENT
  Sex: Female

DRUGS (7)
  1. MEVACOR [Concomitant]
     Route: 048
  2. GLEEVEC [Suspect]
     Dosage: 300 MG, DAILY
     Route: 048
     Dates: start: 20110317
  3. ZILACTIN [Concomitant]
  4. GLEEVEC [Suspect]
     Indication: GASTROINTESTINAL STROMAL TUMOUR
     Dosage: 400 MG, DAILY
     Route: 048
     Dates: start: 20110316, end: 20110512
  5. LEVOXYL [Concomitant]
     Route: 048
  6. ASPIRIN [Concomitant]
     Route: 048
  7. GLEEVEC [Suspect]
     Dosage: 100 MG, DAILY
     Route: 048
     Dates: start: 20110408

REACTIONS (14)
  - THROMBOCYTOSIS [None]
  - DIARRHOEA [None]
  - ASCITES [None]
  - PLEURAL EFFUSION [None]
  - NAUSEA [None]
  - RETCHING [None]
  - ANAEMIA [None]
  - OEDEMA [None]
  - PERICARDIAL EFFUSION [None]
  - RASH [None]
  - BENIGN NEOPLASM OF THYROID GLAND [None]
  - OEDEMA PERIPHERAL [None]
  - WEIGHT DECREASED [None]
  - PANCREATIC DISORDER [None]
